FAERS Safety Report 9913149 (Version 1)
Quarter: 2014Q1

REPORT INFORMATION
  Report Type: Spontaneous
  Country: US (occurrence: None)
  Receive Date: 20140214
  Receipt Date: 20140214
  Transmission Date: 20141002
  Serious: Yes (Other)
  Sender: FDA-Public Use
  Company Number: 2170964

PATIENT
  Age: 53 Year
  Sex: Male
  Weight: 86.18 kg

DRUGS (2)
  1. BUPRENORPHINE HCL [Suspect]
     Indication: PAIN
     Route: 042
     Dates: start: 20140128, end: 20140128
  2. ALBUTEROL  /00139501/ [Concomitant]

REACTIONS (6)
  - Somnolence [None]
  - Respiratory depression [None]
  - Oxygen saturation decreased [None]
  - Drug effect prolonged [None]
  - Medication error [None]
  - Wrong technique in drug usage process [None]
